FAERS Safety Report 10939744 (Version 2)
Quarter: 2015Q1

REPORT INFORMATION
  Report Type: Spontaneous
  Country: US (occurrence: None)
  Receive Date: 20150212
  Receipt Date: 20150212
  Transmission Date: 20150721
  Serious: No
  Sender: FDA-Public Use
  Company Number: TPA2011A04637

PATIENT
  Age: 54 Year
  Sex: Male
  Weight: 98.88 kg

DRUGS (1)
  1. ULORIC [Suspect]
     Active Substance: FEBUXOSTAT
     Indication: GOUT
     Route: 048
     Dates: start: 20110723, end: 20110803

REACTIONS (3)
  - Nausea [None]
  - Gout [None]
  - Rash [None]

NARRATIVE: CASE EVENT DATE: 20110803
